FAERS Safety Report 9026608 (Version 1)
Quarter: 2013Q1

REPORT INFORMATION
  Report Type: Spontaneous
  Country: US (occurrence: None)
  Receive Date: 20130107
  Receipt Date: 20130107
  Transmission Date: 20140127
  Serious: Yes (Death)
  Sender: FDA-Public Use
  Company Number: UTC-027050

PATIENT
  Age: 68 Year
  Sex: Female

DRUGS (1)
  1. REMODULIN (1 MILLIGRAM/MILLILITERS, INJECTION FOR INFUSION)(TREPROSTINIL SODIUM) [Suspect]
     Indication: PULMONARY ARTERIAL HYPERTENSION
     Dosage: (0.007 UG/KG,1 IN 1 MIN)
     Route: 041
     Dates: start: 20110624

REACTIONS (2)
  - Abdominal pain upper [None]
  - Fluid retention [None]
